FAERS Safety Report 7684124-1 (Version None)
Quarter: 2011Q3

REPORT INFORMATION
  Report Type: 
  Country: None (occurrence: None)
  Receive Date: 20110815
  Receipt Date: 20110805
  Transmission Date: 20111222
  Serious: Yes (Hospitalization, Other)
  Sender: FDA-Public Use
  Company Number: US-PURDUE-USA-2011-0067960

PATIENT
  Sex: Female
  Weight: 72.562 kg

DRUGS (8)
  1. DESOXYN [Concomitant]
     Dosage: 5 MG, DAILY
  2. OXYCONTIN [Suspect]
     Indication: FIBROMYALGIA
  3. XANAX [Concomitant]
     Indication: ANXIETY
     Dosage: 1 MG, TID
  4. OXYCONTIN [Suspect]
     Indication: PAIN
     Dosage: 80 MG, TID
     Route: 048
     Dates: start: 20100801
  5. LYRICA [Concomitant]
     Indication: PAIN
     Dosage: 25 MG, BID
  6. FUROSEMIDE [Concomitant]
     Dosage: 20 MG, DAILY
  7. OMEPRAZOLE [Concomitant]
     Indication: PRODUCT USED FOR UNKNOWN INDICATION
     Dosage: 20 MG, BID
  8. OXYCONTIN [Suspect]
     Indication: INTERVERTEBRAL DISC DEGENERATION

REACTIONS (5)
  - CONSTIPATION [None]
  - INTESTINAL OBSTRUCTION [None]
  - ANKLE FRACTURE [None]
  - ABDOMINAL DISTENSION [None]
  - GASTROINTESTINAL PAIN [None]
